FAERS Safety Report 14554206 (Version 1)
Quarter: 2018Q1

REPORT INFORMATION
  Report Type: Spontaneous
  Country: US (occurrence: US)
  Receive Date: 20180208
  Receipt Date: 20180208
  Transmission Date: 20180509
  Serious: No
  Sender: FDA-Public Use
  Company Number: None

PATIENT
  Age: 68 Year
  Sex: Male
  Weight: 83.9 kg

DRUGS (1)
  1. APIXABAN [Suspect]
     Active Substance: APIXABAN
     Indication: PULMONARY EMBOLISM
     Route: 048
     Dates: start: 20150729, end: 20150902

REACTIONS (6)
  - Refusal of treatment by patient [None]
  - Gastric haemorrhage [None]
  - Full blood count decreased [None]
  - Abdominal pain upper [None]
  - Faeces discoloured [None]
  - Haemoglobin decreased [None]

NARRATIVE: CASE EVENT DATE: 20150831
